FAERS Safety Report 5728058-8 (Version None)
Quarter: 2008Q2

REPORT INFORMATION
  Report Type: 
  Country: None (occurrence: None)
  Receive Date: 20080430
  Receipt Date: 20080415
  Transmission Date: 20081010
  Serious: Yes (Hospitalization)
  Sender: FDA-Public Use
  Company Number: 2008000856

PATIENT
  Age: 64 Year
  Sex: Female

DRUGS (4)
  1. ERLOTINIB /PLACEBO (ERLOTINIB HCL) (TABLET) (ERLOTINIB HCL) [Suspect]
     Indication: NON-SMALL CELL LUNG CANCER
     Dosage: 150 MG QD; ORAL
     Route: 048
     Dates: start: 20080401
  2. BEVACIZUMAB (INJECTION FOR INFUSION) [Suspect]
     Indication: NON-SMALL CELL LUNG CANCER
     Dosage: 15 MG/KG, Q3W; INTRAVENOUS
     Route: 042
  3. LEXAPRO [Concomitant]
  4. XANAX [Concomitant]

REACTIONS (5)
  - BLOOD SODIUM DECREASED [None]
  - FIBRIN D DIMER INCREASED [None]
  - HAEMOGLOBIN DECREASED [None]
  - HAEMOPTYSIS [None]
  - PULMONARY MASS [None]
